FAERS Safety Report 6925602 (Version 3)
Quarter: 2012Q4

REPORT INFORMATION
  Report Type: 
  Country: BR (occurrence: BR)
  Receive Date: 20090303
  Receipt Date: 20121102
  Transmission Date: 20130627
  Serious: Yes (Hospitalization, Other)
  Sender: FDA-Public Use
  Company Number: PHHY2009BR05657

PATIENT
  Age: 63 Year
  Sex: Female

DRUGS (7)
  1. DIOVAN HCT [Suspect]
     Indication: HYPERTENSION
     Dosage: 80mg of vals and 12.5 mg of hyd
     Dates: start: 1999
  2. DIOVAN HCT [Suspect]
     Dosage: 2 DF,(160 mg of vals and 12.5 mg of hyd)
  3. DIOVAN HCT [Suspect]
     Dosage: 1 DF, daily (320mg of val;s and 12.5 mg of hyd)
     Route: 048
  4. DIOVAN [Suspect]
     Indication: HYPERTENSION
     Dosage: 160 mg, one tablet a day
  5. ISOSORBIDE MONONITRATE [Concomitant]
     Dosage: 20 mg, daily
     Route: 048
     Dates: start: 2005
  6. VASTAREL [Concomitant]
     Dosage: 20 mg, one tablet daily
     Route: 048
     Dates: start: 2005
  7. ANGIPRESS [Concomitant]
     Indication: HEART RATE ABNORMAL
     Dosage: 25 mg, one tablet daily
     Route: 048

REACTIONS (9)
  - Infarction [Recovered/Resolved]
  - Angina pectoris [Recovered/Resolved]
  - Pulmonary function test decreased [Recovered/Resolved]
  - Blood pressure fluctuation [Recovered/Resolved]
  - Dizziness [Recovered/Resolved]
  - Hepatic steatosis [Recovered/Resolved]
  - Thyroid disorder [Recovered/Resolved]
  - Back injury [Recovered/Resolved]
  - Hypotension [Recovered/Resolved]
